FAERS Safety Report 12306557 (Version 2)
Quarter: 2016Q2

REPORT INFORMATION
  Report Type: Spontaneous
  Country: CL (occurrence: CL)
  Receive Date: 20160426
  Receipt Date: 20160616
  Transmission Date: 20160815
  Serious: No
  Sender: FDA-Public Use
  Company Number: CL-PFIZER INC-2016227506

PATIENT
  Age: 76 Year
  Sex: Male

DRUGS (2)
  1. PREDNISONE. [Concomitant]
     Active Substance: PREDNISONE
     Indication: ERDHEIM-CHESTER DISEASE
  2. SIROLIMUS. [Suspect]
     Active Substance: SIROLIMUS
     Indication: ERDHEIM-CHESTER DISEASE
     Dosage: 2 MG, DAILY

REACTIONS (1)
  - Product use issue [Unknown]
